FAERS Safety Report 14047708 (Version 1)
Quarter: 2017Q4

REPORT INFORMATION
  Report Type: Spontaneous
  Country: US (occurrence: US)
  Receive Date: 20171005
  Receipt Date: 20171005
  Transmission Date: 20180321
  Serious: No
  Sender: FDA-Public Use
  Company Number: None

PATIENT
  Age: 54 Year
  Sex: Female
  Weight: 112.5 kg

DRUGS (1)
  1. TALTZ [Suspect]
     Active Substance: IXEKIZUMAB
     Indication: PSORIASIS
     Dosage: ?          OTHER FREQUENCY:@ WEEK 12 THEN Q4W;?
     Route: 058
     Dates: start: 20170721, end: 20171005

REACTIONS (1)
  - Pruritus [None]

NARRATIVE: CASE EVENT DATE: 20171005
